FAERS Safety Report 10466474 (Version 2)
Quarter: 2014Q4

REPORT INFORMATION
  Report Type: Report from Study
  Country: GR (occurrence: GR)
  Receive Date: 20140922
  Receipt Date: 20141011
  Transmission Date: 20150528
  Serious: Yes (Death, Hospitalization)
  Sender: FDA-Public Use
  Company Number: PHHY2014GR117029

PATIENT
  Age: 82 Year
  Sex: Male

DRUGS (2)
  1. SANDOSTATIN LAR DEPOT [Suspect]
     Active Substance: OCTREOTIDE ACETATE
     Indication: ENDOCRINE NEOPLASM
     Dosage: UNK UKN, UNK
     Route: 065
     Dates: start: 20130701
  2. SANDOSTATIN [Suspect]
     Active Substance: OCTREOTIDE ACETATE
     Indication: ENDOCRINE NEOPLASM
     Dosage: UNK UKN, UNK
     Route: 065
     Dates: start: 20140425, end: 20140921

REACTIONS (4)
  - Vomiting [Unknown]
  - Abdominal pain [Unknown]
  - Death [Fatal]
  - Ileus [Unknown]

NARRATIVE: CASE EVENT DATE: 20140928
